FAERS Safety Report 8549437-X (Version None)
Quarter: 2012Q3

REPORT INFORMATION
  Report Type: 
  Country: None (occurrence: None)
  Receive Date: 20120730
  Receipt Date: 20120727
  Transmission Date: 20120928
  Serious: Yes (Death)
  Sender: FDA-Public Use
  Company Number: HK-PFIZER INC-2012181966

PATIENT
  Age: 83 Year
  Sex: Male

DRUGS (3)
  1. NORVASC [Suspect]
  2. LIPITOR [Suspect]
  3. OLMESARTAN MEDOXOMIL [Suspect]

REACTIONS (1)
  - DEATH [None]
